FAERS Safety Report 14934372 (Version 1)
Quarter: 2018Q2

REPORT INFORMATION
  Report Type: Spontaneous
  Country: US (occurrence: US)
  Receive Date: 20180505
  Receipt Date: 20180505
  Transmission Date: 20180711
  Serious: No
  Sender: FDA-Public Use
  Company Number: None

PATIENT
  Age: 65 Year
  Sex: Male
  Weight: 63.5 kg

DRUGS (5)
  1. VIT D 3 [Concomitant]
  2. VITAMIN E [Concomitant]
     Active Substance: .ALPHA.-TOCOPHEROL
  3. ZOLOFT [Concomitant]
     Active Substance: SERTRALINE HYDROCHLORIDE
  4. FISH OIL [Concomitant]
     Active Substance: FISH OIL
  5. DEPLIN [Suspect]
     Active Substance: LEVOMEFOLATE CALCIUM
     Indication: BLOOD FOLATE DECREASED
     Dosage: ?          QUANTITY:1 DF DOSAGE FORM;?
     Route: 048
     Dates: start: 20180501, end: 20180504

REACTIONS (4)
  - Dizziness [None]
  - Malaise [None]
  - Feeling abnormal [None]
  - Thirst [None]

NARRATIVE: CASE EVENT DATE: 20180501
